FAERS Safety Report 8598752-2 (Version None)
Quarter: 2012Q3

REPORT INFORMATION
  Report Type: 
  Country: None (occurrence: None)
  Receive Date: 20120806
  Receipt Date: 20120806
  Transmission Date: 20120928
  Serious: Yes (Hospitalization)
  Sender: FDA-Public Use
  Company Number: None

PATIENT
  Sex: Male
  Weight: 83.9154 kg

DRUGS (4)
  1. PRADAXA [Concomitant]
  2. LEXAPRO [Suspect]
     Indication: PALPITATIONS
     Dosage: 10MG 1/DAY PO
     Route: 048
     Dates: start: 20120406, end: 20120731
  3. PRISTIQ [Suspect]
     Indication: PALPITATIONS
     Dosage: 50MG 1/DAY PO
     Route: 048
     Dates: start: 20120406, end: 20120731
  4. TENORMIN [Concomitant]

REACTIONS (1)
  - ATRIAL FIBRILLATION [None]
